FAERS Safety Report 9537512 (Version 3)
Quarter: 2013Q4

REPORT INFORMATION
  Report Type: Spontaneous
  Country: FR (occurrence: FR)
  Receive Date: 20130919
  Receipt Date: 20131202
  Transmission Date: 20140711
  Serious: Yes (Hospitalization)
  Sender: FDA-Public Use
  Company Number: FR-ELI_LILLY_AND_COMPANY-FR201309003608

PATIENT
  Sex: Female
  Weight: 80 kg

DRUGS (2)
  1. CYMBALTA [Suspect]
     Indication: PRODUCT USED FOR UNKNOWN INDICATION
     Dosage: 60 MG, QD
     Route: 048
  2. SEROQUEL [Concomitant]
     Dosage: UNK
     Dates: end: 201302

REACTIONS (1)
  - Transaminases increased [Recovering/Resolving]
